FAERS Safety Report 6095118-4 (Version None)
Quarter: 2009Q1

REPORT INFORMATION
  Report Type: 
  Country: None (occurrence: None)
  Receive Date: 20090227
  Receipt Date: 20080122
  Transmission Date: 20090719
  Serious: No
  Sender: FDA-Public Use
  Company Number: A0704632A

PATIENT
  Age: 76 Year
  Sex: Male

DRUGS (3)
  1. LAMICTAL [Suspect]
     Indication: BIPOLAR DISORDER
     Dosage: 100MG PER DAY
     Route: 048
  2. DEPAKOTE [Suspect]
     Indication: BIPOLAR I DISORDER
     Route: 065
  3. ZYPREXA [Concomitant]

REACTIONS (2)
  - NEUTROPHIL COUNT ABNORMAL [None]
  - WHITE BLOOD CELL COUNT ABNORMAL [None]
